FAERS Safety Report 25424271 (Version 3)
Quarter: 2025Q4

REPORT INFORMATION
  Report Type: Spontaneous
  Country: US (occurrence: US)
  Receive Date: 20250611
  Receipt Date: 20251219
  Transmission Date: 20260117
  Serious: Yes (Hospitalization, Other)
  Sender: SANOFI AVENTIS
  Company Number: US-SA-2025SA162790

PATIENT
  Age: 52 Year
  Sex: Female

DRUGS (18)
  1. DUPIXENT [Suspect]
     Active Substance: DUPILUMAB
     Indication: Asthma
     Dosage: 600 MG, 1X
  2. DUPIXENT [Suspect]
     Active Substance: DUPILUMAB
     Indication: Dermatitis atopic
     Dosage: 300 MG, QOW
     Route: 058
     Dates: start: 20250606
  3. DUPIXENT [Suspect]
     Active Substance: DUPILUMAB
     Indication: Eczema
  4. DUPIXENT [Suspect]
     Active Substance: DUPILUMAB
     Indication: Anxiety disorder
  5. DULOXETINE [Concomitant]
     Active Substance: DULOXETINE
  6. MELOXICAM [Concomitant]
     Active Substance: MELOXICAM
  7. MONTELUKAST [Concomitant]
     Active Substance: MONTELUKAST
  8. OXYBUTYNIN [Concomitant]
     Active Substance: OXYBUTYNIN
  9. PILOCARPINE [Concomitant]
     Active Substance: PILOCARPINE
  10. HYDROXYCHLOROQUINE SULFATE [Concomitant]
     Active Substance: HYDROXYCHLOROQUINE SULFATE
  11. TOPIRAMATE [Concomitant]
     Active Substance: TOPIRAMATE
  12. VENTOLIN HFA [Concomitant]
     Active Substance: ALBUTEROL SULFATE
  13. VITAMIN D3 [Concomitant]
     Active Substance: CHOLECALCIFEROL
  14. GEMTESA [Concomitant]
     Active Substance: VIBEGRON
  15. ESTRACE [Concomitant]
     Active Substance: ESTRADIOL
  16. TIZANIDINE HYDROCHLORIDE [Concomitant]
     Active Substance: TIZANIDINE HYDROCHLORIDE
  17. MONTELUKAST SODIUM [Concomitant]
     Active Substance: MONTELUKAST SODIUM
  18. RINVOQ [Concomitant]
     Active Substance: UPADACITINIB

REACTIONS (6)
  - Knee arthroplasty [Unknown]
  - Procedural pain [Unknown]
  - Sleep disorder due to a general medical condition [Unknown]
  - Asthma [Unknown]
  - Dermatitis atopic [Unknown]
  - Product use in unapproved indication [Unknown]

NARRATIVE: CASE EVENT DATE: 20250101
